FAERS Safety Report 11250212 (Version 1)
Quarter: 2015Q3

REPORT INFORMATION
  Report Type: Spontaneous
  Country: US (occurrence: US)
  Receive Date: 20150708
  Receipt Date: 20150708
  Transmission Date: 20151125
  Serious: Yes (Other)
  Sender: FDA-Public Use
  Company Number: US-ELI_LILLY_AND_COMPANY-US200804000565

PATIENT
  Age: 59 Year
  Sex: Male

DRUGS (1)
  1. XIGRIS [Suspect]
     Active Substance: DROTRECOGIN ALFA (ACTIVATED)
     Indication: PNEUMONIA STREPTOCOCCAL
     Dosage: UNK, UNK
     Route: 042

REACTIONS (2)
  - Neutropenia [Recovered/Resolved]
  - Haemorrhage [Recovering/Resolving]
